FAERS Safety Report 18567490 (Version 1)
Quarter: 2020Q4

REPORT INFORMATION
  Report Type: Report from Study
  Country: None (occurrence: IT)
  Receive Date: 20201201
  Receipt Date: 20201201
  Transmission Date: 20210114
  Serious: Yes (Hospitalization, Other)
  Sender: FDA-Public Use
  Company Number: IT-ABBVIE-20K-083-3667647-00

PATIENT
  Age: 80 Year
  Sex: Male

DRUGS (2)
  1. DUODOPA [Suspect]
     Active Substance: CARBIDOPA\LEVODOPA
  2. DUODOPA [Suspect]
     Active Substance: CARBIDOPA\LEVODOPA
     Indication: PARKINSON^S DISEASE
     Dosage: TOTAL DAILY DOSE (MG): 1228; PUMP SETTING: MD: 10+3; CR: 2,9; ED: 2,5
     Route: 050
     Dates: start: 20161017

REACTIONS (3)
  - Fall [Unknown]
  - Head injury [Unknown]
  - Haematoma [Unknown]

NARRATIVE: CASE EVENT DATE: 2020
